FAERS Safety Report 23439053 (Version 1)
Quarter: 2024Q1

REPORT INFORMATION
  Report Type: Spontaneous
  Country: US (occurrence: None)
  Receive Date: 20240124
  Receipt Date: 20240124
  Transmission Date: 20240409
  Serious: Yes (Other)
  Sender: FDA-Public Use
  Company Number: None

PATIENT
  Sex: Female

DRUGS (2)
  1. KESIMPTA [Suspect]
     Active Substance: OFATUMUMAB
     Indication: Multiple sclerosis
     Dosage: OTHER QUANTITY : 20 MG/0.4ML;?FREQUENCY : MONTHLY;?
     Route: 058
     Dates: start: 20221206
  2. KESIMPTA [Suspect]
     Active Substance: OFATUMUMAB
     Dosage: OTHER QUANTITY : 1 PEN;?FREQUENCY : MONTHLY;?
     Route: 058

REACTIONS (2)
  - Headache [None]
  - Intentional dose omission [None]
